FAERS Safety Report 9459852 (Version 1)
Quarter: 2013Q3

REPORT INFORMATION
  Report Type: Report from Study
  Country: CA (occurrence: CA)
  Receive Date: 20130815
  Receipt Date: 20130815
  Transmission Date: 20140515
  Serious: Yes (Hospitalization)
  Sender: FDA-Public Use
  Company Number: CA-JNJFOC-20130805161

PATIENT
  Age: 12 Year
  Sex: Male
  Weight: 36 kg

DRUGS (6)
  1. REMICADE [Suspect]
     Indication: CROHN^S DISEASE
     Route: 042
     Dates: start: 20130305
  2. METHOTREXATE [Concomitant]
     Route: 065
  3. PREVACID [Concomitant]
     Indication: CROHN^S DISEASE
     Dosage: DAILY
     Route: 065
  4. FOLIC ACID [Concomitant]
     Dosage: DAILY
     Route: 065
  5. VITAMIN D [Concomitant]
     Dosage: DAILY
     Route: 065
  6. CALCIUM [Concomitant]
     Dosage: DAILY
     Route: 065

REACTIONS (1)
  - Crohn^s disease [Unknown]
